FAERS Safety Report 21880610 (Version 1)
Quarter: 2023Q1

REPORT INFORMATION
  Report Type: Report from Study
  Country: US (occurrence: US)
  Receive Date: 20230118
  Receipt Date: 20230118
  Transmission Date: 20230418
  Serious: No
  Sender: FDA-Public Use
  Company Number: US-ABBVIE-4240606

PATIENT
  Sex: Male

DRUGS (3)
  1. RINVOQ [Suspect]
     Active Substance: UPADACITINIB
     Indication: Dermatitis atopic
     Dosage: FORM STRENGTH: 15 MG
     Route: 048
     Dates: start: 202210
  2. covid-19 vaccine [Concomitant]
     Indication: COVID-19 immunisation
  3. INFLUENZA VIRUS VACCINE [Concomitant]
     Active Substance: INFLUENZA VIRUS VACCINE
     Indication: Immunisation

REACTIONS (6)
  - Blood cholesterol increased [Unknown]
  - Musculoskeletal chest pain [Unknown]
  - Throat irritation [Recovered/Resolved]
  - Migraine [Recovered/Resolved]
  - Nasopharyngitis [Unknown]
  - Muscle spasms [Unknown]
